FAERS Safety Report 14715630 (Version 4)
Quarter: 2019Q2

REPORT INFORMATION
  Report Type: Spontaneous
  Country: US (occurrence: US)
  Receive Date: 20180404
  Receipt Date: 20190409
  Transmission Date: 20190711
  Serious: Yes (Other)
  Sender: FDA-Public Use
  Company Number: US-ASTRAZENECA-2018SE41566

PATIENT
  Age: 22894 Day
  Sex: Male

DRUGS (34)
  1. PREVACID 24 HR [Suspect]
     Active Substance: LANSOPRAZOLE
     Route: 065
     Dates: start: 199901, end: 201608
  2. VICODIN [Concomitant]
     Active Substance: ACETAMINOPHEN\HYDROCODONE BITARTRATE
  3. NEXIUM [Suspect]
     Active Substance: ESOMEPRAZOLE MAGNESIUM
     Route: 048
     Dates: start: 20110514, end: 20110514
  4. PRILOSEC OTC [Suspect]
     Active Substance: OMEPRAZOLE MAGNESIUM
     Route: 048
     Dates: start: 199901, end: 201608
  5. LONITEN [Concomitant]
     Active Substance: MINOXIDIL
  6. HYDRALAZINE [Concomitant]
     Active Substance: HYDRALAZINE HYDROCHLORIDE
  7. NIFEDIPINE. [Concomitant]
     Active Substance: NIFEDIPINE
  8. CARVEDILOL. [Concomitant]
     Active Substance: CARVEDILOL
  9. DEXILANT [Suspect]
     Active Substance: DEXLANSOPRAZOLE
     Route: 065
     Dates: start: 199901, end: 201608
  10. PREVACID 24 HR [Suspect]
     Active Substance: LANSOPRAZOLE
     Route: 065
     Dates: start: 199901, end: 201105
  11. AMLODIPINE [Concomitant]
     Active Substance: AMLODIPINE BESYLATE
  12. SIMVASTATIN. [Concomitant]
     Active Substance: SIMVASTATIN
  13. NITROGLYCERIN. [Concomitant]
     Active Substance: NITROGLYCERIN
  14. PRILOSEC [Suspect]
     Active Substance: OMEPRAZOLE MAGNESIUM
     Route: 048
     Dates: start: 199901, end: 201608
  15. PRILOSEC OTC [Suspect]
     Active Substance: OMEPRAZOLE MAGNESIUM
     Route: 048
     Dates: start: 199901, end: 201105
  16. PLAVIX [Concomitant]
     Active Substance: CLOPIDOGREL BISULFATE
  17. NEXIUM [Suspect]
     Active Substance: ESOMEPRAZOLE MAGNESIUM
     Route: 048
     Dates: start: 199901, end: 201105
  18. PREVACID [Suspect]
     Active Substance: LANSOPRAZOLE
     Route: 065
     Dates: start: 19990101, end: 20001231
  19. REQUIP [Concomitant]
     Active Substance: ROPINIROLE HYDROCHLORIDE
  20. PROTONIX [Suspect]
     Active Substance: PANTOPRAZOLE SODIUM
     Route: 065
     Dates: start: 199901, end: 201608
  21. PROTONIX [Suspect]
     Active Substance: PANTOPRAZOLE SODIUM
     Route: 065
     Dates: start: 199901, end: 201105
  22. NEXIUM [Suspect]
     Active Substance: ESOMEPRAZOLE MAGNESIUM
     Route: 048
     Dates: start: 199901, end: 201608
  23. NEXIUM 24HR [Suspect]
     Active Substance: ESOMEPRAZOLE MAGNESIUM
     Route: 048
     Dates: start: 199901, end: 201608
  24. LOPRESSOR [Concomitant]
     Active Substance: METOPROLOL TARTRATE
  25. CLONIDINE. [Concomitant]
     Active Substance: CLONIDINE
  26. TRAMADOL. [Concomitant]
     Active Substance: TRAMADOL
  27. RENVELA [Concomitant]
     Active Substance: SEVELAMER CARBONATE
  28. NEXIUM 24HR [Suspect]
     Active Substance: ESOMEPRAZOLE MAGNESIUM
     Route: 048
     Dates: start: 199901, end: 201105
  29. PREVACID [Suspect]
     Active Substance: LANSOPRAZOLE
     Route: 065
     Dates: start: 199901, end: 201608
  30. PREVACID [Suspect]
     Active Substance: LANSOPRAZOLE
     Route: 065
     Dates: start: 199901, end: 201105
  31. ASPIRIN. [Concomitant]
     Active Substance: ASPIRIN
  32. PRAVACHOL [Concomitant]
     Active Substance: PRAVASTATIN SODIUM
  33. LISINOPRIL. [Concomitant]
     Active Substance: LISINOPRIL
  34. TRAMADOL. [Concomitant]
     Active Substance: TRAMADOL

REACTIONS (6)
  - Nephrogenic anaemia [Unknown]
  - End stage renal disease [Unknown]
  - Renal injury [Unknown]
  - Renal failure [Unknown]
  - Chronic kidney disease [Unknown]
  - Acute kidney injury [Unknown]

NARRATIVE: CASE EVENT DATE: 20110514
